FAERS Safety Report 6252455-8 (Version None)
Quarter: 2009Q3

REPORT INFORMATION
  Report Type: 
  Country: None (occurrence: None)
  Receive Date: 20090701
  Receipt Date: 20090625
  Transmission Date: 20100115
  Serious: Yes (Disabling, Other)
  Sender: FDA-Public Use
  Company Number: US-ASTRAZENECA-2009UW11364

PATIENT
  Age: 77 Year
  Sex: Female
  Weight: 66.2 kg

DRUGS (3)
  1. CRESTOR [Suspect]
     Indication: HYPERLIPIDAEMIA
     Route: 048
     Dates: start: 20090227, end: 20090402
  2. CRESTOR [Suspect]
     Route: 048
     Dates: start: 20090401
  3. ASPIRIN [Concomitant]

REACTIONS (10)
  - ABDOMINAL PAIN [None]
  - ASTHENIA [None]
  - BLADDER DISORDER [None]
  - HAEMATURIA [None]
  - HEADACHE [None]
  - MICROALBUMINURIA [None]
  - MUSCLE DISORDER [None]
  - RENAL DISORDER [None]
  - RHABDOMYOLYSIS [None]
  - URINARY TRACT INFECTION [None]
